FAERS Safety Report 25058385 (Version 2)
Quarter: 2025Q1

REPORT INFORMATION
  Report Type: Spontaneous
  Country: US (occurrence: US)
  Receive Date: 20250310
  Receipt Date: 20250324
  Transmission Date: 20250409
  Serious: No
  Sender: PFIZER
  Company Number: US-PFIZER INC-202400302622

PATIENT
  Age: 66 Year
  Sex: Female

DRUGS (1)
  1. IBRANCE [Suspect]
     Active Substance: PALBOCICLIB
     Route: 048

REACTIONS (9)
  - Bone pain [Unknown]
  - Dyspnoea [Unknown]
  - Rhinorrhoea [Unknown]
  - Fungal infection [Unknown]
  - Tinea pedis [Unknown]
  - Fungal skin infection [Unknown]
  - Oral candidiasis [Unknown]
  - Epistaxis [Unknown]
  - Product dose omission in error [Unknown]
